FAERS Safety Report 10852511 (Version 1)
Quarter: 2015Q1

REPORT INFORMATION
  Report Type: Spontaneous
  Country: US (occurrence: US)
  Receive Date: 20150222
  Receipt Date: 20150222
  Transmission Date: 20150721
  Serious: No
  Sender: FDA-Public Use
  Company Number: US-ALLERGAN-1419135US

PATIENT
  Age: 40 Year
  Sex: Female

DRUGS (1)
  1. BOTOX COSMETIC [Suspect]
     Active Substance: ONABOTULINUMTOXINA
     Indication: SKIN WRINKLING
     Dosage: UNK
     Route: 030
     Dates: start: 20140830, end: 20140830

REACTIONS (9)
  - Nausea [Unknown]
  - Asthenia [Unknown]
  - Hypoaesthesia [Unknown]
  - Feeding disorder [Unknown]
  - Gait disturbance [Unknown]
  - Pyrexia [Unknown]
  - Aphasia [Unknown]
  - Dyspnoea [Unknown]
  - Dysphagia [Unknown]

NARRATIVE: CASE EVENT DATE: 20140830
